FAERS Safety Report 21227665 (Version 4)
Quarter: 2024Q3

REPORT INFORMATION
  Report Type: Spontaneous
  Country: US (occurrence: US)
  Receive Date: 20220818
  Receipt Date: 20240718
  Transmission Date: 20241017
  Serious: No
  Sender: LUPIN
  Company Number: US-LUPIN PHARMACEUTICALS INC.-2022-10437

PATIENT

DRUGS (2)
  1. BUPROPION HYDROCHLORIDE [Suspect]
     Active Substance: BUPROPION HYDROCHLORIDE
     Indication: Product used for unknown indication
     Dosage: UNK
     Route: 065
  2. BUPROPION HYDROCHLORIDE [Suspect]
     Active Substance: BUPROPION HYDROCHLORIDE
     Dosage: UNK (150 MG HCL XL)
     Route: 065

REACTIONS (8)
  - Allergic reaction to excipient [Unknown]
  - Adverse drug reaction [Unknown]
  - Drug ineffective [Unknown]
  - Urticaria [Unknown]
  - Rash vesicular [Unknown]
  - Rash erythematous [Unknown]
  - Rash macular [Unknown]
  - Rash pruritic [Unknown]
